FAERS Safety Report 7386639-2 (Version None)
Quarter: 2011Q1

REPORT INFORMATION
  Report Type: 
  Country: None (occurrence: None)
  Receive Date: 20110331
  Receipt Date: 20110318
  Transmission Date: 20110831
  Serious: Yes (Hospitalization)
  Sender: FDA-Public Use
  Company Number: GB-AMGEN-KDC401300

PATIENT
  Age: 78 Year
  Sex: Male

DRUGS (5)
  1. UNSPECIFIED STEROIDS [Concomitant]
     Dosage: UNK UNK, UNK
     Route: 048
  2. ROMIPLOSTIM [Suspect]
     Indication: IDIOPATHIC THROMBOCYTOPENIC PURPURA
     Dosage: 255 A?G, UNK
     Route: 058
     Dates: start: 20090720
  3. FELODIPINE [Concomitant]
     Dosage: 2.5 MG, QD
     Dates: start: 20081201
  4. PREDNISOLONE [Concomitant]
  5. AMILORIDE/CYCLOPENTHIAZIDE [Concomitant]
     Dosage: UNK UNK, UNK
     Dates: start: 20090803

REACTIONS (2)
  - HAEMORRHAGE [None]
  - HYPERTENSION [None]
